FAERS Safety Report 19477538 (Version 1)
Quarter: 2021Q2

REPORT INFORMATION
  Report Type: Spontaneous
  Country: US (occurrence: US)
  Receive Date: 20210630
  Receipt Date: 20210630
  Transmission Date: 20210717
  Serious: No
  Sender: FDA-Public Use
  Company Number: None

PATIENT
  Age: 80 Year
  Sex: Female
  Weight: 114 kg

DRUGS (1)
  1. DOXYCYCLINE (DOXYCYCLINE HYCLATE 100MG TAB) [Suspect]
     Active Substance: DOXYCYCLINE HYCLATE
     Indication: INFECTION
     Route: 048
     Dates: start: 20210407, end: 20210408

REACTIONS (5)
  - Aphasia [None]
  - Oesophagitis [None]
  - Pneumonia aspiration [None]
  - Dysphagia [None]
  - Bacterial infection [None]

NARRATIVE: CASE EVENT DATE: 20210409
